FAERS Safety Report 26127065 (Version 1)
Quarter: 2025Q4

REPORT INFORMATION
  Report Type: Spontaneous
  Country: US (occurrence: None)
  Receive Date: 20251205
  Receipt Date: 20251205
  Transmission Date: 20260118
  Serious: Yes (Hospitalization)
  Sender: FDA-CTU
  Company Number: None

PATIENT
  Age: 62 Year
  Sex: Male
  Weight: 108 kg

DRUGS (2)
  1. JATENZO [Suspect]
     Active Substance: TESTOSTERONE UNDECANOATE
     Dosage: FREQUENCY : TWICE A DAY;?
     Route: 048
     Dates: start: 20231123, end: 20241214
  2. TESTOSTERONE [Concomitant]
     Active Substance: TESTOSTERONE
     Dates: start: 20231123, end: 20241214

REACTIONS (3)
  - Angina unstable [None]
  - Coronary artery stenosis [None]
  - Coronary artery disease [None]

NARRATIVE: CASE EVENT DATE: 20241214
